FAERS Safety Report 11704256 (Version 1)
Quarter: 2015Q4

REPORT INFORMATION
  Report Type: Spontaneous
  Country: US (occurrence: US)
  Receive Date: 20151106
  Receipt Date: 20151106
  Transmission Date: 20160304
  Serious: No
  Sender: FDA-Public Use
  Company Number: US-MEDA-2015100100

PATIENT
  Age: 61 Year
  Sex: Female
  Weight: 49 kg

DRUGS (8)
  1. SYNTHROID [Concomitant]
     Active Substance: LEVOTHYROXINE SODIUM
     Indication: BASEDOW^S DISEASE
  2. OXYCODONE [Concomitant]
     Active Substance: OXYCODONE
     Dosage: UP TO 8 PILLS A DAY
  3. TRAZODONE [Concomitant]
     Active Substance: TRAZODONE HYDROCHLORIDE
  4. ZYRTEC [Concomitant]
     Active Substance: CETIRIZINE HYDROCHLORIDE
     Indication: ALLERGY TO ARTHROPOD STING
  5. SOMA [Suspect]
     Active Substance: CARISOPRODOL
  6. CELEBREX [Suspect]
     Active Substance: CELECOXIB
  7. LYRICA [Concomitant]
     Active Substance: PREGABALIN
  8. CELEBREX [Suspect]
     Active Substance: CELECOXIB

REACTIONS (1)
  - Body height decreased [Not Recovered/Not Resolved]
